FAERS Safety Report 9110879 (Version 1)
Quarter: 2013Q1

REPORT INFORMATION
  Report Type: Spontaneous
  Country: US (occurrence: US)
  Receive Date: 20130219
  Receipt Date: 20130219
  Transmission Date: 20140127
  Serious: No
  Sender: FDA-Public Use
  Company Number: US-BRISTOL-MYERS SQUIBB COMPANY-16974412

PATIENT
  Age: 61 Year
  Sex: Female
  Weight: 99.77 kg

DRUGS (2)
  1. ORENCIA [Suspect]
     Indication: RHEUMATOID ARTHRITIS
     Dosage: INF: 3, LAST INFUSION: 04SEP2012
     Route: 042
     Dates: start: 201207, end: 201210
  2. METHOTREXATE [Concomitant]

REACTIONS (2)
  - Alopecia [Unknown]
  - Therapeutic response decreased [Unknown]
